FAERS Safety Report 8880237 (Version 1)
Quarter: 2012Q4

REPORT INFORMATION
  Report Type: 
  Country: DE (occurrence: DE)
  Receive Date: 20121031
  Receipt Date: 20121031
  Transmission Date: 20130627
  Serious: Yes (Other)
  Sender: FDA-Public Use
  Company Number: PHHY2012DE097120

PATIENT
  Age: 52 Year
  Sex: Female

DRUGS (3)
  1. PRAMIPEXOLE [Suspect]
     Indication: DYSTONIA
     Dosage: 0.088 mg, BID
  2. ROPINIROLE [Suspect]
     Indication: DYSTONIA
     Dosage: 0.5 mg, QD
  3. ROPINIROLE [Suspect]
     Dosage: 0.25 mg, QD

REACTIONS (1)
  - Female orgasmic disorder [Recovered/Resolved]
